FAERS Safety Report 4314766-2 (Version None)
Quarter: 2004Q1

REPORT INFORMATION
  Report Type: 
  Country: None (occurrence: None)
  Receive Date: 20040308
  Receipt Date: 20040226
  Transmission Date: 20041129
  Serious: Yes (Hospitalization)
  Sender: FDA-Public Use
  Company Number: SE-JNJFOC-20040300015

PATIENT
  Age: 84 Year
  Sex: Male

DRUGS (3)
  1. RISPERDAL [Suspect]
     Indication: PSYCHOTIC DISORDER
     Dosage: 1 MG, 1 IN 1 DAY, ORAL
     Route: 048
  2. EFFEXOR [Suspect]
     Indication: PSYCHOTIC DISORDER
     Dosage: 150 MG, ORAL
     Route: 048
  3. LITHIONIT (LITHIUM SULFATE) TABLETS [Suspect]
     Indication: PSYCHOTIC DISORDER
     Dosage: 126 MG, ORAL
     Route: 048
     Dates: end: 20040123

REACTIONS (7)
  - BLOOD CALCIUM INCREASED [None]
  - BUNDLE BRANCH BLOCK LEFT [None]
  - BUNDLE BRANCH BLOCK RIGHT [None]
  - CONFUSIONAL STATE [None]
  - DRUG INTERACTION [None]
  - GENERAL PHYSICAL CONDITION ABNORMAL [None]
  - NOCTURIA [None]
